FAERS Safety Report 7917273-0 (Version None)
Quarter: 2011Q4

REPORT INFORMATION
  Report Type: 
  Country: None (occurrence: None)
  Receive Date: 20111114
  Receipt Date: 20111031
  Transmission Date: 20120403
  Serious: Yes (Life-Threatening)
  Sender: FDA-Public Use
  Company Number: TCI2011A05172

PATIENT
  Age: 85 Year
  Sex: Female

DRUGS (6)
  1. DOXAZOSIN MESYLATE [Concomitant]
  2. NOVORAPID 30 MIX (INSULIN ASPART) [Concomitant]
  3. ACTOS [Suspect]
     Indication: DIABETES MELLITUS
     Dosage: 15 MG (15 MG, 1 IN 1 D)
     Dates: start: 20061024, end: 20110916
  4. KINEDAK (EPALRESTAT) [Concomitant]
  5. NIVADIL (NILVADIPINE) [Concomitant]
  6. ENALAPRIL MALEATE [Concomitant]

REACTIONS (2)
  - REFUSAL OF TREATMENT BY PATIENT [None]
  - BLADDER CANCER [None]
